FAERS Safety Report 23727436 (Version 1)
Quarter: 2024Q2

REPORT INFORMATION
  Report Type: Spontaneous
  Country: US (occurrence: None)
  Receive Date: 20240409
  Receipt Date: 20240409
  Transmission Date: 20240716
  Serious: No
  Sender: FDA-Public Use
  Company Number: None

PATIENT
  Age: 37 Year
  Sex: Female
  Weight: 84.15 kg

DRUGS (1)
  1. NURTEC ODT [Suspect]
     Active Substance: RIMEGEPANT SULFATE
     Indication: Migraine prophylaxis
     Dosage: OTHER QUANTITY : 8 ODT;?OTHER FREQUENCY : EVERY OTHER DAY;?
     Route: 060
     Dates: start: 20240321, end: 20240408

REACTIONS (3)
  - Oropharyngeal pain [None]
  - Rash pruritic [None]
  - Dysphagia [None]

NARRATIVE: CASE EVENT DATE: 20240407
